FAERS Safety Report 19357353 (Version 1)
Quarter: 2021Q2

REPORT INFORMATION
  Report Type: Spontaneous
  Country: CZ (occurrence: CZ)
  Receive Date: 20210601
  Receipt Date: 20210601
  Transmission Date: 20210717
  Serious: Yes (Other)
  Sender: FDA-Public Use
  Company Number: CZ-CELLTRION INC.-2021CZ007132

PATIENT

DRUGS (9)
  1. RITUXIMAB (UNKNOWN) [Suspect]
     Active Substance: RITUXIMAB
     Dosage: UNK 3 CYCLES
     Route: 065
  2. DOXORUBICIN [Suspect]
     Active Substance: DOXORUBICIN
     Indication: LYMPHADENOPATHY
     Dosage: 6 CYCLES
     Route: 065
  3. DEXAMETHASONE. [Suspect]
     Active Substance: DEXAMETHASONE
     Indication: LYMPHADENOPATHY
     Dosage: UNK
     Route: 065
  4. PREDNISOLONE. [Suspect]
     Active Substance: PREDNISOLONE
     Indication: LYMPHADENOPATHY
     Dosage: 6 CYCLES
     Route: 065
  5. CYCLOPHOSPHAMIDE. [Suspect]
     Active Substance: CYCLOPHOSPHAMIDE
     Indication: LYMPHADENOPATHY
     Dosage: 6 CYCLES
     Route: 065
  6. RITUXIMAB (UNKNOWN) [Suspect]
     Active Substance: RITUXIMAB
     Indication: LYMPHADENOPATHY
     Dosage: 6 CYCLES
     Route: 065
  7. GEMCITABINE. [Suspect]
     Active Substance: GEMCITABINE
     Indication: LYMPHADENOPATHY
     Dosage: 3 CYCLES
     Route: 065
  8. VINCRISTINE [Suspect]
     Active Substance: VINCRISTINE
     Indication: LYMPHADENOPATHY
     Dosage: 6 CYCLES
     Route: 065
  9. CISPLATIN. [Suspect]
     Active Substance: CISPLATIN
     Indication: LYMPHADENOPATHY
     Dosage: 3 CYCLES
     Route: 065

REACTIONS (3)
  - Disease progression [Unknown]
  - Off label use [Unknown]
  - Therapy partial responder [Unknown]
